FAERS Safety Report 6602617-2 (Version None)
Quarter: 2010Q1

REPORT INFORMATION
  Report Type: 
  Country: None (occurrence: None)
  Receive Date: 20100225
  Receipt Date: 20100218
  Transmission Date: 20100710
  Serious: Yes (Hospitalization)
  Sender: FDA-Public Use
  Company Number: CZ-AMGEN-US394729

PATIENT
  Age: 48 Year
  Sex: Male

DRUGS (6)
  1. ENBREL [Suspect]
     Indication: ANKYLOSING SPONDYLITIS
     Route: 065
  2. VITAMIN B6 [Concomitant]
     Route: 065
  3. SULFASALAZINE [Concomitant]
     Route: 065
  4. HYPNOGEN [Concomitant]
     Route: 065
  5. LOSARTAN POTASSIUM AND HYDROCHLOROTHIAZIDE [Concomitant]
     Indication: HYPERTENSION
     Route: 065
  6. LOSARTAN POTASSIUM [Concomitant]
     Indication: HYPERTENSION
     Route: 065

REACTIONS (1)
  - ROTATOR CUFF SYNDROME [None]
